FAERS Safety Report 15608564 (Version 1)
Quarter: 2018Q4

REPORT INFORMATION
  Report Type: Spontaneous
  Country: US (occurrence: US)
  Receive Date: 20181112
  Receipt Date: 20181112
  Transmission Date: 20190205
  Serious: Yes (Other)
  Sender: FDA-Public Use
  Company Number: US-SA-2018SA308787

PATIENT
  Age: 22 Year
  Sex: Female

DRUGS (1)
  1. DIPHENHYDRAMINE. [Suspect]
     Active Substance: DIPHENHYDRAMINE
     Indication: SUICIDE ATTEMPT
     Dosage: 200 DF, 1X; 1 TABLET= 25 MG
     Route: 048

REACTIONS (9)
  - Foetal death [Unknown]
  - Paraesthesia [Unknown]
  - Exposure during pregnancy [Unknown]
  - Agonal rhythm [Unknown]
  - Tachycardia [Unknown]
  - Paraesthesia oral [Unknown]
  - Overdose [Unknown]
  - Seizure [Unknown]
  - Blood gases abnormal [Recovering/Resolving]
